FAERS Safety Report 18690039 (Version 1)
Quarter: 2020Q4

REPORT INFORMATION
  Report Type: Spontaneous
  Country: US (occurrence: US)
  Receive Date: 20201231
  Receipt Date: 20201231
  Transmission Date: 20210114
  Serious: No
  Sender: FDA-Public Use
  Company Number: US-STRONGBRIDGE BIOPHARMA-2020-STR-000335

PATIENT
  Sex: Female

DRUGS (1)
  1. KEVEYIS [Suspect]
     Active Substance: DICHLORPHENAMIDE
     Indication: FAMILIAL PERIODIC PARALYSIS
     Dosage: 25MG IN THE MORNING AND 50MG IN THE EVENING
     Route: 048
     Dates: start: 20190913

REACTIONS (6)
  - Dehydration [Unknown]
  - Condition aggravated [Unknown]
  - Sinusitis [Unknown]
  - Wrong technique in product usage process [Unknown]
  - Blood potassium decreased [Unknown]
  - Polyuria [Unknown]
